FAERS Safety Report 10244327 (Version 1)
Quarter: 2014Q2

REPORT INFORMATION
  Report Type: Other
  Country: JP (occurrence: JP)
  Receive Date: 20140618
  Receipt Date: 20140618
  Transmission Date: 20141212
  Serious: Yes (Death)
  Sender: FDA-Public Use
  Company Number: JP-ACTELION-A-CH2014-100384

PATIENT
  Age: 69 Year
  Sex: Male
  Weight: 52 kg

DRUGS (3)
  1. TRACLEER [Suspect]
     Indication: PULMONARY ARTERIAL HYPERTENSION
     Dosage: 125 MG, QD
     Route: 048
     Dates: start: 200912
  2. TIOTROPIUM BROMIDE [Concomitant]
  3. TULOBUTEROL [Concomitant]

REACTIONS (4)
  - Respiratory failure [Fatal]
  - Concomitant disease progression [Fatal]
  - Drug eruption [Unknown]
  - Rash [Unknown]
